FAERS Safety Report 9492787 (Version 1)
Quarter: 2013Q3

REPORT INFORMATION
  Report Type: Spontaneous
  Country: US (occurrence: US)
  Receive Date: 20130830
  Receipt Date: 20130830
  Transmission Date: 20140515
  Serious: Yes (Other)
  Sender: FDA-Public Use
  Company Number: US-PFIZER INC-2013250742

PATIENT
  Age: 42 Year
  Sex: Male
  Weight: 143 kg

DRUGS (2)
  1. ROBITUSSIN DAYTIME COLD AND FLU [Suspect]
     Indication: MALAISE
     Dosage: UNK
     Dates: start: 20130827
  2. TYLENOL [Concomitant]
     Dosage: UNK

REACTIONS (6)
  - Aphagia [Unknown]
  - Apparent death [Unknown]
  - Foreign body [Unknown]
  - Product size issue [Unknown]
  - Dyspnoea [Unknown]
  - Dysphagia [Unknown]
